FAERS Safety Report 5375106-3 (Version None)
Quarter: 2007Q2

REPORT INFORMATION
  Report Type: 
  Country: None (occurrence: None)
  Receive Date: 20070629
  Receipt Date: 20060908
  Transmission Date: 20071010
  Serious: No
  Sender: FDA-Public Use
  Company Number: US-ASTRAZENECA-2006UW15411

PATIENT
  Age: 25 Year
  Sex: Female
  Weight: 60.9 kg

DRUGS (2)
  1. ZOLADEX [Suspect]
     Indication: ENDOMETRIOSIS
     Route: 058
     Dates: start: 20060608
  2. MICRONOR [Concomitant]
     Indication: ENDOMETRIOSIS
     Route: 048
     Dates: start: 20060608

REACTIONS (1)
  - INJECTION SITE SCAR [None]
